FAERS Safety Report 12643294 (Version 1)
Quarter: 2016Q3

REPORT INFORMATION
  Report Type: Spontaneous
  Country: GR (occurrence: GR)
  Receive Date: 20160811
  Receipt Date: 20160811
  Transmission Date: 20161109
  Serious: Yes (Hospitalization, Other)
  Sender: FDA-Public Use
  Company Number: GR-BRISTOL-MYERS SQUIBB COMPANY-BMS-2016-064461

PATIENT
  Age: 80 Year
  Sex: Female
  Weight: 47 kg

DRUGS (7)
  1. LOPRESSOR [Concomitant]
     Active Substance: METOPROLOL TARTRATE
     Indication: CORONARY ARTERY DISEASE
     Route: 048
  2. OPDIVO [Suspect]
     Active Substance: NIVOLUMAB
     Indication: RENAL CANCER
     Dosage: 140 MG, Q2WK
     Route: 042
     Dates: start: 20160622
  3. APROVEL [Concomitant]
     Active Substance: IRBESARTAN
     Indication: HYPERTENSION
     Route: 048
  4. FENTADUR [Concomitant]
     Indication: RENAL CANCER
     Route: 062
  5. APROVEL [Concomitant]
     Active Substance: IRBESARTAN
     Indication: CORONARY ARTERY DISEASE
  6. LONALGAL [Concomitant]
     Active Substance: ACETAMINOPHEN\CODEINE PHOSPHATE
     Indication: RENAL CANCER
     Route: 048
  7. LASIX [Concomitant]
     Active Substance: FUROSEMIDE
     Indication: HYPERTENSION
     Route: 048

REACTIONS (1)
  - Right ventricular failure [Recovered/Resolved with Sequelae]

NARRATIVE: CASE EVENT DATE: 20160701
